FAERS Safety Report 21596636 (Version 1)
Quarter: 2022Q4

REPORT INFORMATION
  Report Type: Spontaneous
  Country: US (occurrence: US)
  Receive Date: 20221115
  Receipt Date: 20221115
  Transmission Date: 20230113
  Serious: No
  Sender: FDA-Public Use
  Company Number: US-PFIZER INC-202201296223

PATIENT
  Sex: Male

DRUGS (3)
  1. PAXLOVID [Interacting]
     Active Substance: NIRMATRELVIR\RITONAVIR
     Indication: COVID-19 treatment
     Dosage: UNK
  2. TAMSULOSIN [Interacting]
     Active Substance: TAMSULOSIN
     Indication: Prostatomegaly
     Dosage: 1 DF
  3. TAMSULOSIN [Interacting]
     Active Substance: TAMSULOSIN
     Dosage: 0.8 MG

REACTIONS (2)
  - Drug interaction [Unknown]
  - Muscle spasms [Unknown]
